FAERS Safety Report 11239133 (Version 2)
Quarter: 2015Q3

REPORT INFORMATION
  Report Type: Spontaneous
  Country: US (occurrence: US)
  Receive Date: 20150706
  Receipt Date: 20150827
  Transmission Date: 20151125
  Serious: Yes (Other)
  Sender: FDA-Public Use
  Company Number: US-AMGEN-USASP2015053247

PATIENT
  Age: 51 Year
  Sex: Female
  Weight: 91.6 kg

DRUGS (2)
  1. BLINCYTO [Suspect]
     Active Substance: BLINATUMOMAB
     Indication: ACUTE LYMPHOCYTIC LEUKAEMIA
     Dosage: UNK, CONTINUED INFUSION
     Route: 042
     Dates: start: 2015, end: 20150527
  2. BLINCYTO [Suspect]
     Active Substance: BLINATUMOMAB
     Indication: DISEASE RECURRENCE

REACTIONS (1)
  - Acute lymphocytic leukaemia recurrent [Not Recovered/Not Resolved]

NARRATIVE: CASE EVENT DATE: 20150525
